FAERS Safety Report 9617547 (Version 2)
Quarter: 2013Q4

REPORT INFORMATION
  Report Type: Report from Study
  Country: GB (occurrence: GB)
  Receive Date: 20131011
  Receipt Date: 20131028
  Transmission Date: 20140711
  Serious: Yes (Congenital Anomaly, Other)
  Sender: FDA-Public Use
  Company Number: GB-ABBVIE-13P-167-1155462-00

PATIENT
  Sex: 0

DRUGS (7)
  1. NORVIR [Suspect]
     Indication: MATERNAL EXPOSURE TIMING UNSPECIFIED
     Route: 064
  2. ZIDOVUDINE [Suspect]
     Indication: MATERNAL EXPOSURE TIMING UNSPECIFIED
     Route: 064
  3. PREZISTA [Suspect]
     Indication: MATERNAL EXPOSURE TIMING UNSPECIFIED
     Route: 064
  4. INTELENCE [Suspect]
     Indication: MATERNAL EXPOSURE TIMING UNSPECIFIED
     Route: 064
  5. ISENTRESS [Suspect]
     Indication: MATERNAL EXPOSURE TIMING UNSPECIFIED
     Route: 064
  6. TRUVADA [Suspect]
     Indication: MATERNAL EXPOSURE TIMING UNSPECIFIED
     Route: 064
  7. APTIVUS [Suspect]
     Indication: MATERNAL EXPOSURE TIMING UNSPECIFIED
     Route: 064

REACTIONS (21)
  - Tethered cord syndrome [Unknown]
  - Congenital generalised lipodystrophy [Unknown]
  - Genitalia external ambiguous [Unknown]
  - Gastrointestinal disorder congenital [Unknown]
  - Exomphalos [Unknown]
  - Meconium stain [Unknown]
  - Meningomyelocele [Unknown]
  - Sepsis neonatal [Unknown]
  - Blood iron decreased [Unknown]
  - Umbilical cord abnormality [Unknown]
  - Musculoskeletal discomfort [Unknown]
  - Cloacal exstrophy [Unknown]
  - Bladder agenesis [Unknown]
  - Spine malformation [Unknown]
  - Gastrointestinal malformation [Unknown]
  - Erythema [Unknown]
  - Caudal regression syndrome [Unknown]
  - Anal atresia [Unknown]
  - Congenital genital malformation [Unknown]
  - Premature baby [Unknown]
  - Foetal exposure during pregnancy [Unknown]
